FAERS Safety Report 7637805-X (Version None)
Quarter: 2011Q3

REPORT INFORMATION
  Report Type: 
  Country: None (occurrence: None)
  Receive Date: 20110720
  Receipt Date: 20110628
  Transmission Date: 20111222
  Serious: Yes (Hospitalization)
  Sender: FDA-Public Use
  Company Number: 2011PROUSA00370

PATIENT
  Age: 74 Year
  Sex: Male
  Weight: 84.8 kg

DRUGS (13)
  1. ZOFRAN [Concomitant]
  2. MULTIVITAMIN (ASCORBIC ACID, CALCIUM PANTOTHENATE, ERGOCALCIFEROL, NIC [Concomitant]
  3. COLACE (DOCUSATE SODIUM) [Concomitant]
  4. CALCIUM+VIT D (CALCIUM, COLECALCIFEROL) [Concomitant]
  5. GLUCOSAMINE [Concomitant]
  6. PEPCID [Concomitant]
  7. PERCOCET [Concomitant]
  8. PROVENGE [Suspect]
     Indication: PROSTATE CANCER METASTATIC
     Dosage: 250 ML, SINGLE, INTRAVENOUS;
     Route: 042
     Dates: start: 20110516, end: 20110516
  9. ASPIRIN [Concomitant]
  10. PREDNISONE [Concomitant]
  11. ELIGARD [Concomitant]
  12. OXYCONTIN [Concomitant]
  13. SENOKOT (SENNA ALEXANDRINA) [Concomitant]

REACTIONS (6)
  - MUSCULAR WEAKNESS [None]
  - LEUKOPENIA [None]
  - BACK PAIN [None]
  - VENTRICULAR EXTRASYSTOLES [None]
  - UPPER RESPIRATORY TRACT INFECTION [None]
  - PNEUMONIA [None]
